FAERS Safety Report 5101488-3 (Version None)
Quarter: 2006Q3

REPORT INFORMATION
  Report Type: 
  Country: None (occurrence: None)
  Receive Date: 20060906
  Receipt Date: 20060823
  Transmission Date: 20061208
  Serious: Yes (Disabling, Other)
  Sender: FDA-Public Use
  Company Number: 2006103677

PATIENT
  Age: 59 Year
  Sex: Male

DRUGS (4)
  1. LYRICA [Suspect]
     Indication: NEURALGIA
     Dosage: ORAL
     Route: 048
  2. GABAPENTIN [Suspect]
     Indication: NEURALGIA
  3. AMITRIPTYLINE HCL [Concomitant]
  4. ANTIHYPERTENSIVES [Concomitant]

REACTIONS (5)
  - ARTHRALGIA [None]
  - ARTHRITIS [None]
  - IMPAIRED WORK ABILITY [None]
  - JOINT SWELLING [None]
  - MOBILITY DECREASED [None]
